FAERS Safety Report 14002346 (Version 2)
Quarter: 2017Q3

REPORT INFORMATION
  Report Type: Spontaneous
  Country: TR (occurrence: TR)
  Receive Date: 20170922
  Receipt Date: 20170925
  Transmission Date: 20171128
  Serious: Yes (Death, Life-Threatening, Congenital Anomaly, Other)
  Sender: FDA-Public Use
  Company Number: PHHY2017TR138731

PATIENT
  Sex: Female

DRUGS (1)
  1. VENLAFAXINE [Suspect]
     Active Substance: VENLAFAXINE HYDROCHLORIDE
     Indication: FOETAL EXPOSURE DURING PREGNANCY
     Dosage: MATERNAL DOSE: 75 MG/DAY
     Route: 064

REACTIONS (10)
  - Anal atresia [Unknown]
  - Patent ductus arteriosus [Unknown]
  - Foetal exposure during pregnancy [Unknown]
  - Tracheo-oesophageal fistula [Unknown]
  - Adactyly [Unknown]
  - Cardio-respiratory arrest [Fatal]
  - Limb reduction defect [Unknown]
  - Congenital oesophageal anomaly [Unknown]
  - Pericardial effusion [Unknown]
  - Female genital tract fistula [Unknown]
